FAERS Safety Report 6213738-0 (Version None)
Quarter: 2009Q2

REPORT INFORMATION
  Report Type: 
  Country: None (occurrence: None)
  Receive Date: 20090602
  Receipt Date: 20090519
  Transmission Date: 20091009
  Serious: Yes (Hospitalization, Other)
  Sender: FDA-Public Use
  Company Number: APP200900287

PATIENT
  Age: 58 Year
  Sex: Male

DRUGS (7)
  1. AMIODARONE HYDROCHLORIDE [Suspect]
     Indication: ATRIAL FIBRILLATION
     Dosage: 150 MG, ONCE, INTRAVENOUS BOLUS
     Route: 040
     Dates: start: 20090518, end: 20090518
  2. LORAZEPAM [Concomitant]
  3. METOPROLOL (METOPROLOL) [Concomitant]
  4. NITROGLYCERIN [Concomitant]
  5. ZOSYN [Concomitant]
  6. HYDROMORPHONE HCL [Concomitant]
  7. VITAMIN K [Concomitant]

REACTIONS (5)
  - ATRIAL FLUTTER [None]
  - BRADYCARDIA [None]
  - GRAND MAL CONVULSION [None]
  - INFUSION RELATED REACTION [None]
  - MYDRIASIS [None]
